FAERS Safety Report 8548006-5 (Version None)
Quarter: 2012Q3

REPORT INFORMATION
  Report Type: 
  Country: None (occurrence: None)
  Receive Date: 20120729
  Receipt Date: 20120716
  Transmission Date: 20120928
  Serious: Yes (Life-Threatening, Hospitalization)
  Sender: FDA-Public Use
  Company Number: FR-BRISTOL-MYERS SQUIBB COMPANY-16503799

PATIENT
  Age: 51 Year
  Sex: Female
  Weight: 68 kg

DRUGS (1)
  1. SPRYCEL [Suspect]
     Indication: CHRONIC MYELOID LEUKAEMIA
     Dosage: FOR MORE THAN 5 YEARS;1DEC06-4MAR12
     Route: 048
     Dates: start: 20061201

REACTIONS (3)
  - PULMONARY ARTERIAL HYPERTENSION [None]
  - POLYCYTHAEMIA [None]
  - PLEURAL EFFUSION [None]
